FAERS Safety Report 6670718-9 (Version None)
Quarter: 2010Q2

REPORT INFORMATION
  Report Type: 
  Country: None (occurrence: None)
  Receive Date: 20100405
  Receipt Date: 20100319
  Transmission Date: 20101027
  Serious: Yes (Hospitalization)
  Sender: FDA-Public Use
  Company Number: AUR-APL-2010-00895

PATIENT
  Age: 62 Year
  Sex: Female
  Weight: 125 kg

DRUGS (8)
  1. METOPROLOL TARTRATE [Suspect]
     Dosage: 25MG - BID
  2. LISINOPRIL [Suspect]
     Dosage: 10MG - DAILY
  3. AROMASIN [Suspect]
     Indication: BREAST CANCER
     Dosage: 25MG - DAILY
  4. TRIAMTERENE AND HYDROCHLOROTHIAZIDE [Suspect]
     Dosage: 25MG - DAILY
  5. ZOCOR [Suspect]
     Dosage: 20MG - DAILY
  6. AVANDAMET [Suspect]
     Dosage: 2MG/500MG - BID
  7. FOSAMAX [Suspect]
     Dosage: 70MG - ONCE WEEKLY
  8. CALCIUM/VIT D 600 MG TABLETS [Suspect]
     Dosage: 2 TABLETS - DAILY

REACTIONS (4)
  - CHRONIC OBSTRUCTIVE PULMONARY DISEASE [None]
  - CLOSTRIDIAL INFECTION [None]
  - KNEE ARTHROPLASTY [None]
  - PULMONARY EMBOLISM [None]
